FAERS Safety Report 14113035 (Version 2)
Quarter: 2017Q4

REPORT INFORMATION
  Report Type: Report from Study
  Country: US (occurrence: US)
  Receive Date: 20171022
  Receipt Date: 20171220
  Transmission Date: 20180321
  Serious: Yes (Other)
  Sender: FDA-Public Use
  Company Number: PHEH2017US033762

PATIENT
  Sex: Male
  Weight: 86.1 kg

DRUGS (1)
  1. COSENTYX [Suspect]
     Active Substance: SECUKINUMAB
     Indication: PSORIASIS
     Dosage: 300 MG, QMO
     Route: 058

REACTIONS (4)
  - Loss of consciousness [Unknown]
  - Head injury [Unknown]
  - Drug ineffective [Unknown]
  - Psoriasis [Unknown]
